FAERS Safety Report 7385497-X (Version None)
Quarter: 2011Q1

REPORT INFORMATION
  Report Type: 
  Country: None (occurrence: None)
  Receive Date: 20110330
  Receipt Date: 20110325
  Transmission Date: 20110831
  Serious: Yes (Hospitalization)
  Sender: FDA-Public Use
  Company Number: FR-BRISTOL-MYERS SQUIBB COMPANY-15562739

PATIENT
  Age: 55 Year
  Sex: Male
  Weight: 77 kg

DRUGS (6)
  1. STAGID [Suspect]
     Indication: TYPE 2 DIABETES MELLITUS
     Route: 048
     Dates: end: 20110201
  2. POLERY [Concomitant]
     Indication: BRONCHIAL DISORDER
     Dates: start: 20110209, end: 20110209
  3. LIPANTHYL [Concomitant]
     Indication: DYSLIPIDAEMIA
     Route: 048
  4. ONGLYZA [Suspect]
     Indication: TYPE 2 DIABETES MELLITUS
     Route: 048
     Dates: start: 20110201, end: 20110201
  5. ZANIDIP [Concomitant]
     Indication: HYPERTENSION
     Route: 048
  6. ALDACTONE [Concomitant]
     Indication: HYPERTENSION
     Route: 048

REACTIONS (2)
  - GAIT DISTURBANCE [None]
  - MYALGIA [None]
